FAERS Safety Report 10005861 (Version 2)
Quarter: 2014Q1

REPORT INFORMATION
  Report Type: Spontaneous
  Country: US (occurrence: US)
  Receive Date: 20140313
  Receipt Date: 20140327
  Transmission Date: 20141002
  Serious: Yes (Other)
  Sender: FDA-Public Use
  Company Number: US-JNJFOC-20140305828

PATIENT
  Sex: Female

DRUGS (3)
  1. NICOTINE GUM [Suspect]
     Indication: SMOKING CESSATION THERAPY
     Route: 002
  2. NICOTINE PATCH [Suspect]
     Route: 062
  3. NICOTINE PATCH [Suspect]
     Indication: SMOKING CESSATION THERAPY
     Route: 062

REACTIONS (6)
  - Diabetes mellitus [Unknown]
  - Diabetic foot [Unknown]
  - Abnormal dreams [Unknown]
  - Overdose [Unknown]
  - Vomiting [Unknown]
  - Drug ineffective [Unknown]
